FAERS Safety Report 9746079 (Version 1)
Quarter: 2013Q4

REPORT INFORMATION
  Report Type: Report from Study
  Country: US (occurrence: US)
  Receive Date: 20131211
  Receipt Date: 20131211
  Transmission Date: 20140711
  Serious: Yes (Other)
  Sender: FDA-Public Use
  Company Number: US-PURDUE-USA-2013-0109399

PATIENT
  Sex: Male

DRUGS (1)
  1. OXY CR TAB [Suspect]
     Indication: INTERVERTEBRAL DISC PROTRUSION
     Dosage: 30 MG, BID
     Dates: start: 20130821

REACTIONS (1)
  - Upper limb fracture [Recovered/Resolved]
